FAERS Safety Report 11379265 (Version 1)
Quarter: 2015Q3

REPORT INFORMATION
  Report Type: Spontaneous
  Country: FR (occurrence: None)
  Receive Date: 20150812
  Receipt Date: 20150812
  Transmission Date: 20151125
  Serious: Yes (Disabling)
  Sender: FDA-Public Use
  Company Number: FR-ALSI-201500169

PATIENT
  Sex: Male

DRUGS (1)
  1. OXYGENE [Suspect]
     Active Substance: OXYGEN
     Indication: ACCIDENTAL EXPOSURE TO PRODUCT
     Route: 003
     Dates: start: 20150804, end: 20150804

REACTIONS (4)
  - Frostbite [None]
  - Occupational exposure to product [None]
  - Accidental exposure to product [None]
  - Impaired work ability [None]

NARRATIVE: CASE EVENT DATE: 20150804
